FAERS Safety Report 4790401-4 (Version None)
Quarter: 2005Q4

REPORT INFORMATION
  Report Type: 
  Country: None (occurrence: None)
  Receive Date: 20051006
  Receipt Date: 20041022
  Transmission Date: 20060501
  Serious: Yes (Hospitalization, Disabling)
  Sender: FDA-Public Use
  Company Number: DEWYE131822OCT04

PATIENT
  Sex: Female
  Weight: 80 kg

DRUGS (15)
  1. ENBREL [Suspect]
     Indication: RHEUMATOID ARTHRITIS
     Route: 058
     Dates: start: 20040906, end: 20041001
  2. ASCORBIC ACID [Concomitant]
     Indication: ANTIBIOTIC PROPHYLAXIS
     Dosage: 300 MG
     Dates: start: 20040804, end: 20041021
  3. METOPROLOL SUCCINATE [Concomitant]
     Dosage: 95 MG
     Route: 048
     Dates: start: 20030101
  4. PANTOPRAZOLE SODIUM [Concomitant]
     Dosage: 40 MG
     Route: 048
     Dates: start: 20030101
  5. CALCIUM CARBONATE [Concomitant]
     Dosage: 1000 MG
     Route: 048
     Dates: start: 20010101
  6. PANTOTHENIC ACID [Concomitant]
     Dates: start: 20040804, end: 20041021
  7. CYANOCOBALAMIN [Concomitant]
     Dates: start: 20040804, end: 20041021
  8. ERGOCALCIFEROL [Concomitant]
     Dates: start: 20040804, end: 20041021
  9. FOLIC ACID [Concomitant]
     Dates: start: 20040804, end: 20041021
  10. ISONIAZID [Concomitant]
     Dates: start: 20040804, end: 20041021
  11. NICOTINAMIDE [Concomitant]
     Dates: start: 20040804, end: 20041021
  12. PYRIDOXINE HYDROCHLORIDE [Concomitant]
     Dates: start: 20040804, end: 20041021
  13. RIBOFLAVIN TAB [Concomitant]
     Dates: start: 20040804, end: 20041021
  14. THIAMINE HCL [Concomitant]
     Dates: start: 20040804, end: 20041021
  15. YEAST DRIED [Concomitant]
     Dates: start: 20040804, end: 20041021

REACTIONS (3)
  - CHRONIC OBSTRUCTIVE PULMONARY DISEASE [None]
  - CONDITION AGGRAVATED [None]
  - RHEUMATOID NODULE [None]
